FAERS Safety Report 21102448 (Version 8)
Quarter: 2022Q4

REPORT INFORMATION
  Report Type: Report from Study
  Country: US (occurrence: US)
  Receive Date: 20220719
  Receipt Date: 20221107
  Transmission Date: 20230112
  Serious: No
  Sender: FDA-Public Use
  Company Number: US-NOVARTISTESTPH-NVSC2022US163363

PATIENT
  Age: 36 Year
  Sex: Female

DRUGS (3)
  1. KESIMPTA [Suspect]
     Active Substance: OFATUMUMAB
     Indication: Multiple sclerosis
     Dosage: 20 MG, QMO
     Route: 058
     Dates: start: 20220715
  2. KESIMPTA [Suspect]
     Active Substance: OFATUMUMAB
     Dosage: UNK (SECOND DOSE)
     Route: 065
     Dates: start: 20220723
  3. KESIMPTA [Suspect]
     Active Substance: OFATUMUMAB
     Dosage: UNK(THIRD DOSE)
     Route: 065
     Dates: start: 20220731

REACTIONS (16)
  - Bone pain [Recovering/Resolving]
  - Hyperhidrosis [Not Recovered/Not Resolved]
  - Gait disturbance [Recovering/Resolving]
  - Balance disorder [Recovered/Resolved]
  - Dizziness [Recovering/Resolving]
  - Vertigo [Recovering/Resolving]
  - Discomfort [Unknown]
  - Night sweats [Recovering/Resolving]
  - Malaise [Unknown]
  - Rhinorrhoea [Recovered/Resolved]
  - Pruritus [Recovering/Resolving]
  - Pyrexia [Recovering/Resolving]
  - Fatigue [Not Recovered/Not Resolved]
  - Asthenia [Recovering/Resolving]
  - Nasopharyngitis [Not Recovered/Not Resolved]
  - Nasal congestion [Not Recovered/Not Resolved]

NARRATIVE: CASE EVENT DATE: 20220715
